FAERS Safety Report 5271491-1 (Version None)
Quarter: 2007Q1

REPORT INFORMATION
  Report Type: 
  Country: None (occurrence: None)
  Receive Date: 20070316
  Receipt Date: 20070301
  Transmission Date: 20070707
  Serious: Yes (Hospitalization, Other)
  Sender: FDA-Public Use
  Company Number: 2007000200

PATIENT
  Age: 52 Year
  Sex: Female
  Weight: 58.9676 kg

DRUGS (12)
  1. TARCEVA [Suspect]
     Indication: PANCREATIC CARCINOMA
     Dosage: SEE IMAGE
     Route: 048
     Dates: start: 20060120, end: 20060213
  2. TARCEVA [Suspect]
     Indication: PANCREATIC CARCINOMA
     Dosage: SEE IMAGE
     Route: 048
     Dates: start: 20060214
  3. GEMCITABINE [Suspect]
     Dosage: UNK, INTRAVENOUS
     Route: 042
  4. FENTANYL [Concomitant]
  5. NEXIUM [Concomitant]
  6. SYNTHROID [Concomitant]
  7. LASIX [Concomitant]
  8. ALBUTEROL [Concomitant]
  9. XANAX [Concomitant]
  10. ALDACTONE [Concomitant]
  11. TUSSIONEX [Concomitant]
  12. ARANESP [Concomitant]

REACTIONS (3)
  - CARDIAC FAILURE [None]
  - CARDIOMYOPATHY [None]
  - MALIGNANT HYPERTENSION [None]
